FAERS Safety Report 23953373 (Version 1)
Quarter: 2024Q2

REPORT INFORMATION
  Report Type: Report from Study
  Country: NL (occurrence: NL)
  Receive Date: 20240608
  Receipt Date: 20240608
  Transmission Date: 20240716
  Serious: Yes (Hospitalization, Other)
  Sender: FDA-Public Use
  Company Number: NL-ABBVIE-5736873

PATIENT

DRUGS (11)
  1. ADALIMUMAB [Suspect]
     Active Substance: ADALIMUMAB\ISOPROPYL ALCOHOL
     Indication: Crohn^s disease
     Dosage: UNK
     Route: 065
     Dates: start: 2019, end: 2019
  2. ADALIMUMAB [Suspect]
     Active Substance: ADALIMUMAB\ISOPROPYL ALCOHOL
     Dosage: UNK
     Route: 058
  3. USTEKINUMAB [Suspect]
     Active Substance: USTEKINUMAB
     Indication: Crohn^s disease
     Dosage: UNK
     Route: 065
     Dates: start: 2020
  4. RINVOQ [Suspect]
     Active Substance: UPADACITINIB
     Indication: Crohn^s disease
     Dosage: UNK
     Route: 048
  5. PREDNISONE ACETATE [Suspect]
     Active Substance: PREDNISONE ACETATE
     Indication: Crohn^s disease
     Dosage: UNK
     Route: 065
     Dates: start: 2021
  6. FILGOTINIB [Suspect]
     Active Substance: FILGOTINIB
     Indication: Crohn^s disease
     Dosage: UNK
     Route: 065
     Dates: start: 2021, end: 2021
  7. VEDOLIZUMAB [Suspect]
     Active Substance: VEDOLIZUMAB
     Indication: Crohn^s disease
     Dosage: UNK
     Route: 065
     Dates: start: 2021, end: 2021
  8. UPADACITINIB [Suspect]
     Active Substance: UPADACITINIB
     Indication: Crohn^s disease
     Dosage: 15 DOSAGE FORM
     Route: 048
     Dates: start: 202306, end: 202402
  9. AZATHIOPRINE SODIUM [Suspect]
     Active Substance: AZATHIOPRINE SODIUM
     Indication: Crohn^s disease
     Route: 065
  10. INFLIXIMAB [Suspect]
     Active Substance: INFLIXIMAB
     Indication: Crohn^s disease
     Route: 065
  11. ABATACEPT [Suspect]
     Active Substance: ABATACEPT
     Indication: Crohn^s disease
     Route: 065

REACTIONS (22)
  - Intestinal anastomosis [Unknown]
  - Ileostomy [Unknown]
  - Intestinal fistula [Recovered/Resolved]
  - Colectomy total [Not Recovered/Not Resolved]
  - Ileectomy [Unknown]
  - Ileectomy [Not Recovered/Not Resolved]
  - Crohn^s disease [Not Recovered/Not Resolved]
  - Feeling abnormal [Unknown]
  - Steroid dependence [Not Recovered/Not Resolved]
  - Asthenia [Unknown]
  - General symptom [Unknown]
  - Skin reaction [Unknown]
  - Therapeutic product effect decreased [Unknown]
  - Drug ineffective [Not Recovered/Not Resolved]
  - Drug ineffective [Not Recovered/Not Resolved]
  - Drug ineffective [Not Recovered/Not Resolved]
  - Drug ineffective [Not Recovered/Not Resolved]
  - Drug ineffective [Not Recovered/Not Resolved]
  - Therapeutic product effect decreased [Not Recovered/Not Resolved]
  - Crohn^s disease [Unknown]
  - Malaise [Recovered/Resolved]
  - Ileostomy [Unknown]

NARRATIVE: CASE EVENT DATE: 20040101
